FAERS Safety Report 6515843-8 (Version None)
Quarter: 2009Q4

REPORT INFORMATION
  Report Type: 
  Country: None (occurrence: None)
  Receive Date: 20091223
  Receipt Date: 20091218
  Transmission Date: 20100525
  Serious: Yes (Death, Hospitalization)
  Sender: FDA-Public Use
  Company Number: JP-BAYER-200914939BYL

PATIENT
  Age: 68 Year
  Sex: Male

DRUGS (2)
  1. FLUDARA [Suspect]
     Indication: NON-HODGKIN'S LYMPHOMA
     Route: 048
     Dates: start: 20090218, end: 20090222
  2. FLUDARA [Suspect]
     Route: 048
     Dates: start: 20090318, end: 20090322

REACTIONS (2)
  - DEATH [None]
  - OBLITERATIVE BRONCHIOLITIS [None]
